FAERS Safety Report 13519943 (Version 2)
Quarter: 2017Q2

REPORT INFORMATION
  Report Type: Spontaneous
  Country: US (occurrence: US)
  Receive Date: 20170506
  Receipt Date: 20170616
  Transmission Date: 20170830
  Serious: Yes (Other)
  Sender: FDA-Public Use
  Company Number: US-TEVA-760447ACC

PATIENT
  Age: 39 Year
  Sex: Female

DRUGS (16)
  1. CLONAZEPAM. [Concomitant]
     Active Substance: CLONAZEPAM
     Dates: start: 20160809
  2. PRAZOSIN. [Concomitant]
     Active Substance: PRAZOSIN
     Dates: start: 20160809
  3. BACLOFEN. [Concomitant]
     Active Substance: BACLOFEN
  4. COPAXONE [Suspect]
     Active Substance: GLATIRAMER ACETATE
     Indication: MULTIPLE SCLEROSIS
     Dosage: 20 MILLIGRAM/MILLILITERS DAILY;
     Route: 058
     Dates: start: 20161207
  5. LATUDA [Concomitant]
     Active Substance: LURASIDONE HYDROCHLORIDE
  6. BENADRYL ALG [Concomitant]
     Dates: start: 20161206
  7. DIVALPROEX DR [Concomitant]
     Active Substance: DIVALPROEX SODIUM
     Dates: start: 20160809
  8. CLONIDINE. [Concomitant]
     Active Substance: CLONIDINE
     Dates: start: 20160809
  9. IMODIUM MS [Concomitant]
     Dates: start: 20161206
  10. PERCOCET [Concomitant]
     Active Substance: ACETAMINOPHEN\OXYCODONE HYDROCHLORIDE
  11. PEPCID [Concomitant]
     Active Substance: FAMOTIDINE
     Dates: start: 20161206
  12. TYLENOL [Concomitant]
     Active Substance: ACETAMINOPHEN
     Dates: start: 20161206
  13. PROZAC [Concomitant]
     Active Substance: FLUOXETINE HYDROCHLORIDE
  14. FLUEXETINE [Concomitant]
  15. OXYCODONE [Concomitant]
     Active Substance: OXYCODONE
  16. ZANTAC [Concomitant]
     Active Substance: RANITIDINE HYDROCHLORIDE
     Dates: start: 20161206

REACTIONS (3)
  - Urinary tract disorder [Not Recovered/Not Resolved]
  - Fall [Not Recovered/Not Resolved]
  - Multiple sclerosis relapse [Not Recovered/Not Resolved]

NARRATIVE: CASE EVENT DATE: 201705
